FAERS Safety Report 4988123-X (Version None)
Quarter: 2006Q2

REPORT INFORMATION
  Report Type: 
  Country: None (occurrence: None)
  Receive Date: 20060425
  Receipt Date: 20060412
  Transmission Date: 20061013
  Serious: Yes (Other)
  Sender: FDA-Public Use
  Company Number: DEWYE551112APR06

PATIENT
  Age: 52 Year
  Sex: Female

DRUGS (8)
  1. RAPAMUNE [Suspect]
     Indication: PROPHYLAXIS AGAINST TRANSPLANT REJECTION
     Dosage: 5 MG UNKNOWN
     Route: 065
     Dates: start: 20020119
  2. DECORTIN (PREDNISONE) [Concomitant]
  3. BISOPROLOL FUMARATE [Concomitant]
  4. PROTAPHAN (INSULIN ISOPHANE, HUMAN BIOSYNTHETIC) [Concomitant]
  5. LASIX [Concomitant]
  6. BENZBROMARONE (BENZBROMARONE) [Concomitant]
  7. KALINOR RETARD (POTASSIUM CHLORIDE) [Concomitant]
  8. ATORVASTATIN CALCIUM [Concomitant]

REACTIONS (1)
  - RASH PRURITIC [None]
